FAERS Safety Report 11922248 (Version 4)
Quarter: 2018Q4

REPORT INFORMATION
  Report Type: Report from Study
  Country: AU (occurrence: AU)
  Receive Date: 20160115
  Receipt Date: 20181011
  Transmission Date: 20190204
  Serious: Yes (Other)
  Sender: FDA-Public Use
  Company Number: AU-BIOGEN-2014BI025810

PATIENT
  Age: 62 Year
  Sex: Female

DRUGS (5)
  1. CRESTOR [Concomitant]
     Active Substance: ROSUVASTATIN CALCIUM
     Indication: PRODUCT USED FOR UNKNOWN INDICATION
     Route: 065
  2. XARELTO [Concomitant]
     Active Substance: RIVAROXABAN
     Indication: PULMONARY EMBOLISM
     Route: 065
  3. TECFIDERA [Suspect]
     Active Substance: DIMETHYL FUMARATE
     Route: 048
     Dates: end: 20161116
  4. TECFIDERA [Suspect]
     Active Substance: DIMETHYL FUMARATE
     Route: 048
     Dates: start: 201403, end: 20161116
  5. TECFIDERA [Suspect]
     Active Substance: DIMETHYL FUMARATE
     Indication: MULTIPLE SCLEROSIS
     Route: 048
     Dates: start: 20140301

REACTIONS (16)
  - Paraesthesia [Recovered/Resolved]
  - Musculoskeletal disorder [Unknown]
  - Pulmonary embolism [Recovered/Resolved]
  - Poor quality sleep [Unknown]
  - Stress [Unknown]
  - Loss of consciousness [Recovered/Resolved]
  - Balance disorder [Unknown]
  - Cognitive disorder [Unknown]
  - Muscle spasms [Unknown]
  - Dyspnoea [Unknown]
  - Depression [Recovered/Resolved]
  - Cardiac hypertrophy [Recovered/Resolved]
  - Nausea [Unknown]
  - Flushing [Recovered/Resolved]
  - Fall [Recovered/Resolved]
  - Pruritus [Recovered/Resolved]

NARRATIVE: CASE EVENT DATE: 201403
